FAERS Safety Report 18367519 (Version 1)
Quarter: 2020Q4

REPORT INFORMATION
  Report Type: Spontaneous
  Country: CN (occurrence: CN)
  Receive Date: 20201009
  Receipt Date: 20201009
  Transmission Date: 20210114
  Serious: Yes (Other)
  Sender: FDA-Public Use
  Company Number: CN-ELI_LILLY_AND_COMPANY-CN202009013644

PATIENT
  Age: 75 Year
  Sex: Male

DRUGS (2)
  1. MIDAZOLAM. [Concomitant]
     Active Substance: MIDAZOLAM
     Dosage: UNK, UNKNOWN
     Route: 065
  2. ZYPREXA [Suspect]
     Active Substance: OLANZAPINE
     Indication: NEUROPSYCHIATRIC SYMPTOMS
     Dosage: 1.25 MG, BID
     Route: 048
     Dates: start: 20200815, end: 20200913

REACTIONS (8)
  - Supraventricular tachycardia [Unknown]
  - Acute coronary syndrome [Unknown]
  - Atrial fibrillation [Unknown]
  - Bundle branch block left [Unknown]
  - Off label use [Unknown]
  - Ventricular extrasystoles [Unknown]
  - Irritability [Unknown]
  - Ventricular arrhythmia [Unknown]

NARRATIVE: CASE EVENT DATE: 20200815
